FAERS Safety Report 20077638 (Version 1)
Quarter: 2021Q4

REPORT INFORMATION
  Report Type: Spontaneous
  Country: JP (occurrence: JP)
  Receive Date: 20211116
  Receipt Date: 20211116
  Transmission Date: 20220303
  Serious: Yes (Hospitalization, Other)
  Sender: FDA-Public Use
  Company Number: JP-KYOWAKIRIN-2021AKK000299

PATIENT
  Age: 67 Year
  Sex: Male

DRUGS (25)
  1. PEGFILGRASTIM [Suspect]
     Active Substance: PEGFILGRASTIM
     Indication: Product used for unknown indication
     Dosage: UNK (THE 5TH COURSE)
     Route: 058
     Dates: start: 20201221, end: 20201221
  2. FILGRASTIM [Suspect]
     Active Substance: FILGRASTIM
     Indication: Product used for unknown indication
     Dosage: UNK (THE 1ST COURSE)
     Route: 065
     Dates: start: 20200928, end: 20200929
  3. FILGRASTIM [Suspect]
     Active Substance: FILGRASTIM
     Dosage: UNK (THE 2ND COURSE)
     Route: 065
     Dates: start: 20201018, end: 20201019
  4. FILGRASTIM [Suspect]
     Active Substance: FILGRASTIM
     Dosage: UNK (THE 3RD COURSE)
     Route: 065
     Dates: start: 20201109, end: 20201110
  5. FILGRASTIM [Suspect]
     Active Substance: FILGRASTIM
     Dosage: UNK (THE 4TH COURSE)
     Route: 065
     Dates: start: 20201129, end: 20201130
  6. FILGRASTIM [Suspect]
     Active Substance: FILGRASTIM
     Dosage: UNK (THE 6TH COURSE)
     Route: 065
     Dates: start: 20210128, end: 20210129
  7. ONCOVIN [Concomitant]
     Active Substance: VINCRISTINE SULFATE
     Indication: Peripheral T-cell lymphoma unspecified
     Dosage: 2 MG (THE 1ST COURSE)
     Route: 041
     Dates: start: 20200917, end: 20200917
  8. ONCOVIN [Concomitant]
     Active Substance: VINCRISTINE SULFATE
     Dosage: 2 MG (THE 2ND COURSE)
     Route: 041
     Dates: start: 20201009, end: 20201009
  9. ONCOVIN [Concomitant]
     Active Substance: VINCRISTINE SULFATE
     Dosage: 2 MG (THE 3RD COURSE)
     Route: 041
     Dates: start: 20201030, end: 20201030
  10. ONCOVIN [Concomitant]
     Active Substance: VINCRISTINE SULFATE
     Dosage: 2 MG (THE 4TH COURSE)
     Route: 041
     Dates: start: 20201120, end: 20201120
  11. ONCOVIN [Concomitant]
     Active Substance: VINCRISTINE SULFATE
     Dosage: 2 MG (THE 5TH COURSE)
     Route: 041
     Dates: start: 20201211, end: 20201211
  12. ONCOVIN [Concomitant]
     Active Substance: VINCRISTINE SULFATE
     Dosage: UNK (THE 6TH COURSE)
     Route: 041
     Dates: start: 20210119, end: 20210119
  13. DOXORUBICIN HYDROCHLORIDE [Concomitant]
     Active Substance: DOXORUBICIN HYDROCHLORIDE
     Indication: Peripheral T-cell lymphoma unspecified
     Dosage: 87.25 MG (THE 1ST COURSE)
     Route: 041
     Dates: start: 20200917, end: 20200917
  14. DOXORUBICIN HYDROCHLORIDE [Concomitant]
     Active Substance: DOXORUBICIN HYDROCHLORIDE
     Dosage: 86.7 MG (THE 2ND COURSE)
     Route: 041
     Dates: start: 20201009, end: 20201009
  15. DOXORUBICIN HYDROCHLORIDE [Concomitant]
     Active Substance: DOXORUBICIN HYDROCHLORIDE
     Dosage: 86.7 MG (THE 3RD COURSE)
     Route: 041
     Dates: start: 20201030, end: 20201030
  16. DOXORUBICIN HYDROCHLORIDE [Concomitant]
     Active Substance: DOXORUBICIN HYDROCHLORIDE
     Dosage: 86.7 MG (THE 4TH COURSE)
     Route: 041
     Dates: start: 20201120, end: 20201120
  17. DOXORUBICIN HYDROCHLORIDE [Concomitant]
     Active Substance: DOXORUBICIN HYDROCHLORIDE
     Dosage: 86.7 MG (THE 5TH COURSE)
     Route: 041
     Dates: start: 20201211, end: 20201211
  18. DOXORUBICIN HYDROCHLORIDE [Concomitant]
     Active Substance: DOXORUBICIN HYDROCHLORIDE
     Dosage: UNK (THE 6TH COURSE)
     Route: 041
     Dates: start: 20210119, end: 20210119
  19. CYCLOPHOSPHAMIDE [Concomitant]
     Active Substance: CYCLOPHOSPHAMIDE
     Indication: Peripheral T-cell lymphoma unspecified
     Dosage: 1309 MG (THE 1ST COURSE)
     Route: 041
     Dates: start: 20200917, end: 20200917
  20. CYCLOPHOSPHAMIDE [Concomitant]
     Active Substance: CYCLOPHOSPHAMIDE
     Dosage: 1301 MG (THE 2ND COURSE)
     Route: 041
     Dates: start: 20201009, end: 20201009
  21. CYCLOPHOSPHAMIDE [Concomitant]
     Active Substance: CYCLOPHOSPHAMIDE
     Dosage: 1301 MG (THE 3RD COURSE)
     Route: 041
     Dates: start: 20201030, end: 20201030
  22. CYCLOPHOSPHAMIDE [Concomitant]
     Active Substance: CYCLOPHOSPHAMIDE
     Dosage: 1301 MG (THE 4TH COURSE)
     Route: 041
     Dates: start: 20201120, end: 20201120
  23. CYCLOPHOSPHAMIDE [Concomitant]
     Active Substance: CYCLOPHOSPHAMIDE
     Dosage: 1301 MG (THE 5TH COURSE)
     Route: 041
     Dates: start: 20201211, end: 20201211
  24. CYCLOPHOSPHAMIDE [Concomitant]
     Active Substance: CYCLOPHOSPHAMIDE
     Dosage: UNK (THE 6TH COURSE)
     Route: 041
     Dates: start: 20210119, end: 20210119
  25. PREDNISOLONE [Concomitant]
     Active Substance: PREDNISOLONE
     Indication: Peripheral T-cell lymphoma unspecified
     Dosage: UNK
     Route: 048

REACTIONS (1)
  - Arteritis [Unknown]

NARRATIVE: CASE EVENT DATE: 20210104
